FAERS Safety Report 18906350 (Version 1)
Quarter: 2021Q1

REPORT INFORMATION
  Report Type: Spontaneous
  Country: US (occurrence: US)
  Receive Date: 20210217
  Receipt Date: 20210217
  Transmission Date: 20210420
  Serious: Yes (Other)
  Sender: FDA-Public Use
  Company Number: US-ELI_LILLY_AND_COMPANY-US202102007154

PATIENT
  Sex: Female

DRUGS (3)
  1. LEVEMIR [Concomitant]
     Active Substance: INSULIN DETEMIR
     Indication: TYPE 1 DIABETES MELLITUS
     Dosage: 45 U, EACH EVENING (45 UNITS, 7 PM)
  2. HUMALOG [Suspect]
     Active Substance: INSULIN LISPRO
     Indication: TYPE 1 DIABETES MELLITUS
     Dosage: UNK UNK, PRN
     Route: 065
  3. LANTUS [Suspect]
     Active Substance: INSULIN GLARGINE
     Indication: TYPE 1 DIABETES MELLITUS
     Dosage: UNK UNK, UNKNOWN
     Route: 065
     Dates: start: 2007

REACTIONS (3)
  - Visual impairment [Unknown]
  - Blood glucose decreased [Unknown]
  - Blood glucose increased [Unknown]

NARRATIVE: CASE EVENT DATE: 2007
